FAERS Safety Report 15250208 (Version 6)
Quarter: 2018Q3

REPORT INFORMATION
  Report Type: Report from Study
  Country: US (occurrence: US)
  Receive Date: 20180807
  Receipt Date: 20180917
  Transmission Date: 20181010
  Serious: Yes (Other)
  Sender: FDA-Public Use
  Company Number: US-GILEAD-2017-0305925

PATIENT
  Age: 61 Year
  Sex: Female

DRUGS (5)
  1. ADEMPAS [Suspect]
     Active Substance: RIOCIGUAT
     Dosage: 0.5 MG, UNK
     Route: 065
  2. ADEMPAS [Suspect]
     Active Substance: RIOCIGUAT
     Indication: PRODUCT USED FOR UNKNOWN INDICATION
     Dosage: UNK
     Route: 065
  3. AMBRISENTAN [Suspect]
     Active Substance: AMBRISENTAN
     Indication: PRODUCT USED FOR UNKNOWN INDICATION
     Dosage: 5 MG, QD
     Route: 065
     Dates: start: 20171109
  4. TAMIFLU [Suspect]
     Active Substance: OSELTAMIVIR PHOSPHATE
     Indication: INFLUENZA
     Dosage: UNK
     Route: 065
  5. LORATADINE. [Suspect]
     Active Substance: LORATADINE
     Indication: PRODUCT USED FOR UNKNOWN INDICATION
     Dosage: UNK
     Route: 065

REACTIONS (49)
  - Sleep disorder due to a general medical condition [Not Recovered/Not Resolved]
  - Rash [Not Recovered/Not Resolved]
  - Oedema peripheral [Not Recovered/Not Resolved]
  - Hypersensitivity [Not Recovered/Not Resolved]
  - Chest discomfort [Not Recovered/Not Resolved]
  - Ear discomfort [Not Recovered/Not Resolved]
  - Wheezing [Unknown]
  - Rash macular [Unknown]
  - Hypotension [Not Recovered/Not Resolved]
  - Middle ear effusion [Recovering/Resolving]
  - Pain in extremity [Not Recovered/Not Resolved]
  - Productive cough [Unknown]
  - Rash [Recovering/Resolving]
  - Drug hypersensitivity [Recovered/Resolved]
  - Herpes zoster [Not Recovered/Not Resolved]
  - Cough [Not Recovered/Not Resolved]
  - Swelling face [Not Recovered/Not Resolved]
  - Urticaria [Unknown]
  - Peripheral swelling [Unknown]
  - Unevaluable event [Not Recovered/Not Resolved]
  - Blood pressure fluctuation [Not Recovered/Not Resolved]
  - Myalgia [Unknown]
  - Vertigo [Not Recovered/Not Resolved]
  - Rash pruritic [Recovering/Resolving]
  - Rash [Unknown]
  - Malaise [Unknown]
  - Eustachian tube disorder [Not Recovered/Not Resolved]
  - Dyspnoea [Unknown]
  - Dysphonia [Not Recovered/Not Resolved]
  - Joint swelling [Unknown]
  - Lip oedema [Not Recovered/Not Resolved]
  - Eye swelling [Recovering/Resolving]
  - Nasal oedema [Not Recovered/Not Resolved]
  - Arthralgia [Unknown]
  - Lethargy [Not Recovered/Not Resolved]
  - Rash [Unknown]
  - Cardiomyopathy [Not Recovered/Not Resolved]
  - Tonsillar disorder [Not Recovered/Not Resolved]
  - Ear disorder [Not Recovered/Not Resolved]
  - Arthropod infestation [Not Recovered/Not Resolved]
  - Influenza [Recovered/Resolved]
  - Lip swelling [Recovering/Resolving]
  - Allergic cough [Unknown]
  - Weight increased [Not Recovered/Not Resolved]
  - Generalised oedema [Not Recovered/Not Resolved]
  - Fluid retention [Not Recovered/Not Resolved]
  - Nasal congestion [Unknown]
  - Dizziness [Recovered/Resolved]
  - Fatigue [Not Recovered/Not Resolved]

NARRATIVE: CASE EVENT DATE: 20171221
